FAERS Safety Report 21056422 (Version 1)
Quarter: 2022Q3

REPORT INFORMATION
  Report Type: Spontaneous
  Country: US (occurrence: US)
  Receive Date: 20220708
  Receipt Date: 20220708
  Transmission Date: 20221027
  Serious: No
  Sender: FDA-Public Use
  Company Number: US-LUPIN PHARMACEUTICALS INC.-2022-09239

PATIENT
  Age: 30 Year
  Sex: Female

DRUGS (6)
  1. AZITHROMYCIN [Suspect]
     Active Substance: AZITHROMYCIN
     Indication: Gonococcal infection
     Dosage: 1 GRAM
     Route: 048
  2. AZITHROMYCIN [Suspect]
     Active Substance: AZITHROMYCIN
     Indication: Chlamydial infection
  3. CEPHALEXIN [Suspect]
     Active Substance: CEPHALEXIN
     Indication: Pyelonephritis
     Dosage: 500 MG ORALLY 4 TIMES DAILY FOR 14 DAYS
     Route: 048
  4. CEFTRIAXONE [Suspect]
     Active Substance: CEFTRIAXONE
     Indication: Gonococcal infection
     Dosage: 1 GRAM, QD
     Route: 042
  5. CEFTRIAXONE [Suspect]
     Active Substance: CEFTRIAXONE
     Indication: Chlamydial infection
  6. PENICILLIN G BENZATHINE [Suspect]
     Active Substance: PENICILLIN G BENZATHINE
     Indication: Syphilis
     Dosage: PENICILLIN G 2.4 MILLION UNITS (MU) INTRAMUSCULARLY (IM) ONCE A WEEK FOR 3 WEEKS.
     Route: 030

REACTIONS (1)
  - Exposure during pregnancy [Unknown]
